FAERS Safety Report 7627070-1 (Version None)
Quarter: 2011Q3

REPORT INFORMATION
  Report Type: 
  Country: None (occurrence: None)
  Receive Date: 20110714
  Receipt Date: 20110630
  Transmission Date: 20111222
  Serious: Yes (Other)
  Sender: FDA-Public Use
  Company Number: 1000021519

PATIENT
  Age: 45 Year
  Sex: Female
  Weight: 52 kg

DRUGS (6)
  1. ESCITALOPRAM [Suspect]
     Indication: DEPRESSION
     Dosage: 20 MG (20 MG,1 IN 1 D), ORAL
     Route: 048
     Dates: start: 20110516, end: 20110520
  2. ATILNOX (ZOLPIDEM) (TABLETS) (ZOLPIDEM) [Concomitant]
  3. CALCIUM D3 (CALCIUM D3 /01483701/) (CALCIUM D3 /01483701/) [Concomitant]
  4. XANAX (ALPRAZOLAM) (TABLETS) (ALPRAZOLAM) [Concomitant]
  5. SERTRALINE (SERTRALINE) (CAPSULES) (SERTRALINE) [Concomitant]
  6. TERCIAN (CYAMEMAZINE) (SOLUTION) (CYAMEMAZINE) [Concomitant]

REACTIONS (3)
  - LOSS OF CONSCIOUSNESS [None]
  - FALL [None]
  - GRAND MAL CONVULSION [None]
